FAERS Safety Report 20636678 (Version 1)
Quarter: 2022Q1

REPORT INFORMATION
  Report Type: Report from Study
  Country: US (occurrence: US)
  Receive Date: 20220325
  Receipt Date: 20220325
  Transmission Date: 20220423
  Serious: Yes (Hospitalization)
  Sender: FDA-Public Use
  Company Number: US-SECURA BIO, INC.-2022-SECUR-US000022

PATIENT

DRUGS (18)
  1. DUVELISIB [Suspect]
     Active Substance: DUVELISIB
     Indication: Peripheral T-cell lymphoma unspecified refractory
     Dosage: 75 MG, BID
     Route: 048
     Dates: start: 20220126, end: 20220304
  2. ZYLOPRIM [Concomitant]
     Active Substance: ALLOPURINOL
     Indication: Product used for unknown indication
     Dosage: 300 MG BY MOUTH, DAILY
     Route: 048
  3. LIPITOR [Concomitant]
     Active Substance: ATORVASTATIN CALCIUM
     Indication: Product used for unknown indication
     Dosage: 10 MG, BY MOUTH  DAILY
     Route: 048
  4. VITAMIN B12 [Concomitant]
     Active Substance: CYANOCOBALAMIN
     Indication: Product used for unknown indication
     Dosage: 1000 MCG/ML, INTRAMUSCULAR EVERY 28 DAYS
     Route: 030
  5. VITAMIN D2 [Concomitant]
     Active Substance: ERGOCALCIFEROL
     Indication: Product used for unknown indication
     Dosage: 50000 U, 1/WEEK
     Route: 048
  6. FLONASE [Concomitant]
     Active Substance: FLUTICASONE PROPIONATE
     Indication: Product used for unknown indication
     Dosage: 50 UG/ACTUATION NOSTRILS PER DAY
     Route: 050
  7. ZOFRAN [Concomitant]
     Active Substance: ONDANSETRON HYDROCHLORIDE
     Indication: Nausea
     Dosage: 4 MG, Q8HR AS NEEDED UP TO 7 DAYS
     Route: 060
  8. ZOFRAN [Concomitant]
     Active Substance: ONDANSETRON HYDROCHLORIDE
     Indication: Vomiting
  9. ENSURE [Concomitant]
     Active Substance: AMINO ACIDS\DEXTROSE\ELECTROLYTES NOS\SOYBEAN OIL\VITAMINS
     Indication: Product used for unknown indication
     Dosage: 1 CAN BY MOUTH BID WITH MEALS
     Route: 048
  10. REMERON [Concomitant]
     Active Substance: MIRTAZAPINE
     Indication: Product used for unknown indication
     Dosage: 15 MG, BY MOUTH NIGHTLY
     Route: 048
  11. PROTONIX [Concomitant]
     Active Substance: PANTOPRAZOLE SODIUM
     Indication: Product used for unknown indication
     Dosage: 40 MG, DAILY
     Route: 048
  12. POTASSIUM BICARBONATE [Concomitant]
     Active Substance: POTASSIUM BICARBONATE
     Indication: Product used for unknown indication
     Dosage: DISSOLVE 1 TAB (20 MEQ) INTO 3 TO 4 OUNCES OF COLD JUICE AND DRINK 2 TIMES A DAY
     Route: 048
  13. POTASSIUM CHLORIDE [Concomitant]
     Active Substance: POTASSIUM CHLORIDE
     Indication: Product used for unknown indication
     Dosage: 20 MEQ, BID, BY NOT APPLICABLE ROURTE
     Route: 050
  14. DELTASONE [Concomitant]
     Active Substance: PREDNISONE
     Indication: Product used for unknown indication
     Dosage: 20 MG
     Route: 048
  15. COMPAZINE [Concomitant]
     Active Substance: PROCHLORPERAZINE MALEATE
     Indication: Product used for unknown indication
     Dosage: 1 TAB (10 MG), BY MOUTH Q6HR AS NEEDED
     Route: 048
  16. BACTRIM DS [Concomitant]
     Active Substance: SULFAMETHOXAZOLE\TRIMETHOPRIM
     Indication: Product used for unknown indication
     Dosage: 1 TAB (800/160 MG) ORAL ON MON, WED, FRI OF EACH WEEK
     Route: 048
  17. KENALOG [Concomitant]
     Active Substance: TRIAMCINOLONE ACETONIDE
     Indication: Product used for unknown indication
     Dosage: 0.1 % APPLY TO AFFECTED AREA
     Route: 061
  18. VALCYTE [Concomitant]
     Active Substance: VALGANCICLOVIR HYDROCHLORIDE
     Indication: Product used for unknown indication
     Dosage: TAKE 2 TABS (900 MG) DAILY
     Route: 048

REACTIONS (2)
  - COVID-19 [Not Recovered/Not Resolved]
  - Anaemia [Not Recovered/Not Resolved]

NARRATIVE: CASE EVENT DATE: 20220303
